FAERS Safety Report 11054878 (Version 1)
Quarter: 2015Q2

REPORT INFORMATION
  Report Type: Spontaneous
  Country: US (occurrence: None)
  Receive Date: 20150421
  Receipt Date: 20150421
  Transmission Date: 20150821
  Serious: Yes (Other)
  Sender: FDA-Public Use
  Company Number: None

PATIENT
  Age: 36 Year
  Weight: 86.18 kg

DRUGS (2)
  1. CYMBALTA [Suspect]
     Active Substance: DULOXETINE HYDROCHLORIDE
     Indication: ANXIETY
     Dosage: 1 PILL ONCE DAILY TAKEN BY MOUTH
     Route: 048
     Dates: start: 20120401, end: 20150413
  2. CYMBALTA [Suspect]
     Active Substance: DULOXETINE HYDROCHLORIDE
     Indication: NEURALGIA
     Dosage: 1 PILL ONCE DAILY TAKEN BY MOUTH
     Route: 048
     Dates: start: 20120401, end: 20150413

REACTIONS (9)
  - Syncope [None]
  - Dizziness [None]
  - Blood pressure decreased [None]
  - Hyperhidrosis [None]
  - Memory impairment [None]
  - Headache [None]
  - Feeling abnormal [None]
  - Drug withdrawal syndrome [None]
  - Mood swings [None]

NARRATIVE: CASE EVENT DATE: 20150420
